FAERS Safety Report 6430794-5 (Version None)
Quarter: 2009Q4

REPORT INFORMATION
  Report Type: 
  Country: None (occurrence: None)
  Receive Date: 20091106
  Receipt Date: 20091022
  Transmission Date: 20100525
  Serious: Yes (Hospitalization)
  Sender: FDA-Public Use
  Company Number: GB-ELI_LILLY_AND_COMPANY-GB200910005817

PATIENT
  Age: 64 Year
  Sex: Male

DRUGS (5)
  1. GEMCITABINE HCL [Suspect]
     Indication: LUNG NEOPLASM MALIGNANT
     Dosage: 400 MG, UNK
     Route: 042
     Dates: start: 20090922, end: 20090922
  2. CARBOPLATIN [Suspect]
     Indication: LUNG NEOPLASM MALIGNANT
     Dosage: 2280 MG, UNK
     Route: 042
     Dates: start: 20090922, end: 20090922
  3. OTHER PHARMA COMPANY INV DRUG [Suspect]
     Indication: LUNG NEOPLASM MALIGNANT
     Dates: start: 20090723, end: 20091001
  4. ONDANSETRON [Concomitant]
     Dosage: 8 MG, UNK
     Dates: start: 20090922, end: 20090922
  5. DEXAMETHASONE [Concomitant]
     Dosage: 8 MG, UNK
     Dates: start: 20090922

REACTIONS (2)
  - GASTROINTESTINAL HAEMORRHAGE [None]
  - PNEUMONIA [None]
